FAERS Safety Report 19911948 (Version 1)
Quarter: 2021Q4

REPORT INFORMATION
  Report Type: Spontaneous
  Country: US (occurrence: US)
  Receive Date: 20211003
  Receipt Date: 20211003
  Transmission Date: 20220303
  Serious: Yes (Other)
  Sender: FDA-Public Use
  Company Number: None

PATIENT
  Age: 34 Year
  Sex: Male
  Weight: 108.9 kg

DRUGS (3)
  1. TINACTIN [Suspect]
     Active Substance: TOLNAFTATE
     Indication: Tinea pedis
     Dosage: ?          QUANTITY:1 SPRAY(S);
     Route: 061
  2. CLONAZEPAM [Concomitant]
     Active Substance: CLONAZEPAM
  3. GNC MEGAMEN^S MULTI-VITAMIN [Concomitant]

REACTIONS (3)
  - Skin fissures [None]
  - Application site vesicles [None]
  - Gait inability [None]

NARRATIVE: CASE EVENT DATE: 20210730
